FAERS Safety Report 5224312-7 (Version None)
Quarter: 2007Q1

REPORT INFORMATION
  Report Type: 
  Country: None (occurrence: None)
  Receive Date: 20070130
  Receipt Date: 20070119
  Transmission Date: 20070707
  Serious: Yes (Hospitalization)
  Sender: FDA-Public Use
  Company Number: DE-ABBOTT-07P-062-0355768-00

PATIENT
  Sex: Male

DRUGS (3)
  1. HUMIRA [Suspect]
     Indication: DRUG USE FOR UNKNOWN INDICATION
     Route: 058
     Dates: start: 20061001, end: 20070109
  2. ISONIAZID [Suspect]
     Indication: DRUG USE FOR UNKNOWN INDICATION
     Route: 048
     Dates: start: 20060901, end: 20070109
  3. ALENDRONATE SODIUM [Concomitant]
     Indication: OSTEOPOROSIS
     Route: 048

REACTIONS (9)
  - ANOREXIA [None]
  - CHROMATURIA [None]
  - COUGH [None]
  - FAECES DISCOLOURED [None]
  - HEPATIC ENZYME INCREASED [None]
  - OCULAR ICTERUS [None]
  - PHARYNGOLARYNGEAL PAIN [None]
  - PRURITUS [None]
  - URTICARIA [None]
